FAERS Safety Report 10355956 (Version 2)
Quarter: 2014Q3

REPORT INFORMATION
  Report Type: Spontaneous
  Country: US (occurrence: US)
  Receive Date: 20140801
  Receipt Date: 20140801
  Transmission Date: 20150326
  Serious: Yes (Other)
  Sender: FDA-Public Use
  Company Number: US-AMGEN-USASP2014045905

PATIENT
  Age: 75 Year
  Sex: Female

DRUGS (6)
  1. CALTRATE                           /00944201/ [Concomitant]
  2. RED RICE YEAST [Concomitant]
  3. LISINOPRIL. [Concomitant]
     Active Substance: LISINOPRIL
     Dosage: 20 MG, UNK
  4. MULTIVITAMIN                       /00097801/ [Concomitant]
     Active Substance: VITAMINS
  5. PROLIA [Suspect]
     Active Substance: DENOSUMAB
     Indication: OSTEOPOROSIS POSTMENOPAUSAL
     Dosage: UNK
     Route: 065
     Dates: start: 20140127
  6. NEXIUM [Concomitant]
     Active Substance: ESOMEPRAZOLE MAGNESIUM
     Dosage: 40 MG, UNK

REACTIONS (4)
  - Back pain [Recovering/Resolving]
  - Muscle spasms [Unknown]
  - Spinal cord infection [Unknown]
  - Myalgia [Unknown]

NARRATIVE: CASE EVENT DATE: 201405
